FAERS Safety Report 8026242-4 (Version None)
Quarter: 2012Q1

REPORT INFORMATION
  Report Type: 
  Country: None (occurrence: None)
  Receive Date: 20120105
  Receipt Date: 20110317
  Transmission Date: 20120608
  Serious: No
  Sender: FDA-Public Use
  Company Number: US-ABBOTT-11P-163-0712654-00

PATIENT
  Sex: Female
  Weight: 83.536 kg

DRUGS (9)
  1. SYNTHROID [Suspect]
     Route: 048
     Dates: start: 20070101
  2. ATENOLOL [Concomitant]
     Indication: BLOOD PRESSURE INCREASED
     Route: 048
  3. VITAMIN B-12 [Concomitant]
     Indication: VITAMIN B12 DEFICIENCY
     Route: 058
  4. MULTI-VITAMIN [Concomitant]
     Indication: VITAMIN SUPPLEMENTATION
     Route: 048
     Dates: end: 20110310
  5. LIPITOR [Concomitant]
     Indication: BLOOD CHOLESTEROL INCREASED
     Route: 048
  6. CALCIUM W/D [Concomitant]
     Indication: MINERAL SUPPLEMENTATION
     Dosage: 600/?
     Route: 048
     Dates: end: 20110310
  7. SYNTHROID [Suspect]
     Indication: HYPOTHYROIDISM
     Route: 048
     Dates: start: 19900101, end: 20060101
  8. AMLODIPINE [Concomitant]
     Indication: BLOOD PRESSURE INCREASED
     Route: 048
  9. ASPIRIN [Concomitant]
     Indication: PRODUCT USED FOR UNKNOWN INDICATION
     Route: 048
     Dates: end: 20110310

REACTIONS (4)
  - ABNORMAL DREAMS [None]
  - TERMINAL INSOMNIA [None]
  - SOMNOLENCE [None]
  - SLEEP DISORDER [None]
